FAERS Safety Report 10221130 (Version 3)
Quarter: 2015Q4

REPORT INFORMATION
  Report Type: Report from Study
  Country: JP (occurrence: JP)
  Receive Date: 20140606
  Receipt Date: 20151001
  Transmission Date: 20160304
  Serious: Yes (Hospitalization)
  Sender: FDA-Public Use
  Company Number: JP-SA-2014SA072704

PATIENT
  Age: 52 Year
  Sex: Male
  Weight: 66 kg

DRUGS (34)
  1. CRAVIT [Concomitant]
     Active Substance: LEVOFLOXACIN
     Indication: INFECTION PROPHYLAXIS
     Dates: start: 20100325, end: 20100407
  2. BAKTAR [Concomitant]
     Active Substance: SULFAMETHOXAZOLE\TRIMETHOPRIM
     Indication: ANTIFUNGAL PROPHYLAXIS
     Dates: start: 20100625
  3. LENDORMIN [Concomitant]
     Active Substance: BROTIZOLAM
     Indication: INSOMNIA
     Dates: start: 20100701
  4. THYMOGLOBULINE [Suspect]
     Active Substance: LAPINE T-LYMPHOCYTE IMMUNE GLOBULIN
     Indication: BONE MARROW CONDITIONING REGIMEN
     Route: 042
     Dates: start: 20100322, end: 20100322
  5. THYMOGLOBULINE [Suspect]
     Active Substance: LAPINE T-LYMPHOCYTE IMMUNE GLOBULIN
     Indication: BONE MARROW CONDITIONING REGIMEN
     Route: 042
     Dates: start: 20100324, end: 20100324
  6. DALTEPARIN SODIUM [Concomitant]
     Active Substance: DALTEPARIN SODIUM
     Indication: PROPHYLAXIS
     Route: 042
     Dates: start: 20100322, end: 20100605
  7. SANDIMMUN [Concomitant]
     Active Substance: CYCLOSPORINE
     Indication: PROPHYLAXIS AGAINST GRAFT VERSUS HOST DISEASE
     Dates: start: 20100324, end: 20100502
  8. OMEPRAL [Concomitant]
     Active Substance: OMEPRAZOLE
     Indication: HAEMORRHAGE PROPHYLAXIS
     Dates: start: 20100322, end: 20100502
  9. VITAMINS NOS [Concomitant]
     Active Substance: VITAMINS
     Dates: start: 20100323, end: 20100727
  10. VESICARE [Concomitant]
     Active Substance: SOLIFENACIN SUCCINATE
     Dates: start: 20100903
  11. THYMOGLOBULINE [Suspect]
     Active Substance: LAPINE T-LYMPHOCYTE IMMUNE GLOBULIN
     Indication: BONE MARROW CONDITIONING REGIMEN
     Route: 042
     Dates: start: 20100322, end: 20100322
  12. NEUTROGIN [Concomitant]
     Active Substance: LENOGRASTIM
     Dates: start: 20100330, end: 20100409
  13. METHOTREXATE [Concomitant]
     Active Substance: METHOTREXATE
     Dates: start: 20100326, end: 20100331
  14. BIOFERMIN R [Concomitant]
     Active Substance: BACILLUS SUBTILIS\LACTOBACILLUS ACIDOPHILUS\STREPTOCOCCUS FAECAIS
     Indication: INFECTION PROPHYLAXIS
     Dates: start: 20100325
  15. ZYLORIC [Concomitant]
     Active Substance: ALLOPURINOL
     Indication: PROPHYLAXIS
     Dates: start: 20100325, end: 20100401
  16. ZOVIRAX [Concomitant]
     Active Substance: ACYCLOVIR
     Indication: ANTIVIRAL PROPHYLAXIS
     Dates: start: 20100325, end: 20100407
  17. TETRAMIDE [Concomitant]
     Active Substance: MIANSERIN
     Dates: start: 20100513
  18. THYMOGLOBULINE [Suspect]
     Active Substance: LAPINE T-LYMPHOCYTE IMMUNE GLOBULIN
     Indication: BONE MARROW CONDITIONING REGIMEN
     Route: 042
     Dates: start: 20100323, end: 20100323
  19. MAGMITT [Concomitant]
     Active Substance: MAGNESIUM OXIDE
     Indication: CONSTIPATION
     Dates: start: 20100325
  20. NORVASC [Concomitant]
     Active Substance: AMLODIPINE BESYLATE
     Indication: HYPERTENSION
     Dates: start: 20100327, end: 20100714
  21. NEOLAMIN [Concomitant]
     Dates: start: 20100728, end: 20100916
  22. SOLU-MEDROL [Concomitant]
     Active Substance: METHYLPREDNISOLONE SODIUM SUCCINATE
     Indication: PROPHYLAXIS
     Dates: start: 20100322, end: 20100324
  23. URSO [Concomitant]
     Active Substance: URSODIOL
     Indication: PROPHYLAXIS
     Dates: start: 20100325
  24. TETRAMIDE [Concomitant]
     Active Substance: MIANSERIN
     Dates: start: 20100513
  25. VENA [Concomitant]
     Active Substance: DIPHENHYDRAMINE HYDROCHLORIDE
     Indication: PROPHYLAXIS
     Dates: start: 20100322, end: 20100324
  26. FLUCONAZOLE. [Concomitant]
     Active Substance: FLUCONAZOLE
     Indication: ANTIFUNGAL PROPHYLAXIS
     Dates: start: 20100325, end: 20100407
  27. AMOBAN [Concomitant]
     Active Substance: ZOPICLONE
     Route: 048
     Dates: start: 20100508, end: 20100512
  28. FLIVAS [Concomitant]
     Active Substance: NAFTOPIDIL
     Dates: start: 20100903
  29. STRONG NEO-MINOPHAGEN C [Concomitant]
     Active Substance: AMMONIUM GLYCYRRHIZATE\CYSTEINE HYDROCHLORIDE\GLYCINE
     Dates: start: 20100322, end: 20100916
  30. VENOGLOBULIN-IH [Concomitant]
     Indication: HYPOGAMMAGLOBULINAEMIA
     Dates: start: 20100325, end: 20100901
  31. FUNGUARD [Concomitant]
     Active Substance: MICAFUNGIN SODIUM
     Indication: ANTIFUNGAL PROPHYLAXIS
     Route: 042
     Dates: start: 20100401, end: 20100501
  32. ACIROVEC [Concomitant]
     Active Substance: ACYCLOVIR
     Indication: ANTIVIRAL PROPHYLAXIS
     Route: 042
     Dates: start: 20100401, end: 20100501
  33. COCARL [Concomitant]
     Active Substance: ACETAMINOPHEN
     Indication: PROPHYLAXIS
     Dates: start: 20100322, end: 20100324
  34. DOGMATYL [Concomitant]
     Active Substance: SULPIRIDE
     Dates: start: 20100729

REACTIONS (13)
  - Viral haemorrhagic cystitis [Recovered/Resolved]
  - Oliguria [Recovered/Resolved]
  - Hypomagnesaemia [Recovered/Resolved]
  - Cytomegalovirus viraemia [Recovering/Resolving]
  - Stomatitis [Recovering/Resolving]
  - Venoocclusive liver disease [Recovered/Resolved]
  - Febrile neutropenia [Recovering/Resolving]
  - Gastrointestinal hypomotility [Recovering/Resolving]
  - Nausea [Recovered/Resolved]
  - C-reactive protein increased [Recovered/Resolved]
  - Hypokalaemia [Recovering/Resolving]
  - Urinary tract infection [Recovered/Resolved]
  - Pyrexia [Recovered/Resolved]

NARRATIVE: CASE EVENT DATE: 20100322
